FAERS Safety Report 8551949-X (Version None)
Quarter: 2012Q3

REPORT INFORMATION
  Report Type: 
  Country: None (occurrence: None)
  Receive Date: 20120730
  Receipt Date: 20120724
  Transmission Date: 20120928
  Serious: Yes (Other)
  Sender: FDA-Public Use
  Company Number: US-ROCHE-1019926

PATIENT
  Sex: Female

DRUGS (1)
  1. ZELBORAF [Suspect]
     Indication: MALIGNANT MELANOMA
     Route: 048
     Dates: start: 20111107

REACTIONS (17)
  - PYREXIA [None]
  - ARTHRALGIA [None]
  - CHILLS [None]
  - PRURITUS [None]
  - RASH [None]
  - OCULAR HYPERAEMIA [None]
  - FATIGUE [None]
  - ALOPECIA [None]
  - VISION BLURRED [None]
  - HEADACHE [None]
  - NAUSEA [None]
  - SKIN EXFOLIATION [None]
  - MASS [None]
  - EYE PAIN [None]
  - HEPATIC NEOPLASM [None]
  - DYSPHONIA [None]
  - MYALGIA [None]
